FAERS Safety Report 4510073-3 (Version None)
Quarter: 2004Q4

REPORT INFORMATION
  Report Type: 
  Country: None (occurrence: None)
  Receive Date: 20041110
  Receipt Date: 20041109
  Transmission Date: 20050328
  Serious: Yes (Disabling)
  Sender: FDA-Public Use
  Company Number: STA-AE-04-MTX-245

PATIENT
  Age: 13 Year
  Sex: Female

DRUGS (5)
  1. METHOTREXATE [Suspect]
     Indication: JUVENILE ARTHRITIS
     Dosage: 256 MG 4X PER 1 WK, ORAL
     Route: 048
     Dates: start: 19990101, end: 20040524
  2. NAPROXEN SODIUM [Concomitant]
  3. CORTANCYL (PREDNISONE) [Concomitant]
  4. CHIBRO-CADRON (DEXAMETHASONE SODIUM PHOSPHATE/NEOMYCIN SULFATE) [Concomitant]
  5. MYDRIATICUM (TROPICAMIDE) [Concomitant]

REACTIONS (5)
  - ABDOMINAL PAIN [None]
  - AMNESIA [None]
  - HEADACHE [None]
  - HYPERSOMNIA [None]
  - NAUSEA [None]
